FAERS Safety Report 16258465 (Version 1)
Quarter: 2019Q2

REPORT INFORMATION
  Report Type: Spontaneous
  Country: US (occurrence: US)
  Receive Date: 20190430
  Receipt Date: 20190430
  Transmission Date: 20190711
  Serious: Yes (Other)
  Sender: FDA-Public Use
  Company Number: PHEH2019US017507

PATIENT
  Sex: Female

DRUGS (4)
  1. BOSULIF [Suspect]
     Active Substance: BOSUTINIB MONOHYDRATE
     Indication: CHRONIC MYELOID LEUKAEMIA
     Dosage: 100 MG, BID (AT NIGHT)
     Route: 048
     Dates: start: 201710
  2. GLEEVEC [Suspect]
     Active Substance: IMATINIB MESYLATE
     Indication: CHRONIC MYELOID LEUKAEMIA
     Route: 065
  3. LEVOTHYROXINE. [Concomitant]
     Active Substance: LEVOTHYROXINE
     Indication: HYPOTHYROIDISM
     Dosage: 112 MG, QD
     Route: 048
  4. BOSULIF [Suspect]
     Active Substance: BOSUTINIB MONOHYDRATE
     Dosage: UNK
     Route: 048
     Dates: start: 201902

REACTIONS (8)
  - Pain in jaw [Recovered/Resolved]
  - Drug intolerance [Unknown]
  - Feeling abnormal [Not Recovered/Not Resolved]
  - Somnolence [Unknown]
  - Bone pain [Unknown]
  - Toothache [Unknown]
  - Memory impairment [Unknown]
  - Loss of consciousness [Unknown]

NARRATIVE: CASE EVENT DATE: 201903
